FAERS Safety Report 25358568 (Version 1)
Quarter: 2025Q2

REPORT INFORMATION
  Report Type: Spontaneous
  Country: GB (occurrence: GB)
  Receive Date: 20250526
  Receipt Date: 20250526
  Transmission Date: 20250716
  Serious: Yes (Other)
  Sender: AUROBINDO
  Company Number: GB-MHRA-TPP34426047C9622902YC1746799890623

PATIENT
  Age: 82 Year
  Sex: Female
  Weight: 45 kg

DRUGS (10)
  1. FUROSEMIDE [Suspect]
     Active Substance: FUROSEMIDE
     Indication: Product used for unknown indication
     Route: 065
  2. SPIRONOLACTONE [Concomitant]
     Active Substance: SPIRONOLACTONE
     Indication: Ill-defined disorder
     Route: 065
     Dates: start: 20250509
  3. Calci d [Concomitant]
     Indication: Ill-defined disorder
     Route: 065
     Dates: start: 20190222
  4. RISEDRONATE SODIUM [Concomitant]
     Active Substance: RISEDRONATE SODIUM
     Indication: Ill-defined disorder
     Dosage: 1 DOSAGE FORM, EVERY WEEK (TAKE ONE WEEKLY)
     Route: 065
     Dates: start: 20191113
  5. Ensure compact [Concomitant]
     Indication: Ill-defined disorder
     Route: 065
     Dates: start: 20250317
  6. POLYETHYLENE GLYCOL 3350\POTASSIUM CHLORIDE\SODIUM BICARBONATE\SODIUM [Concomitant]
     Active Substance: POLYETHYLENE GLYCOL 3350\POTASSIUM CHLORIDE\SODIUM BICARBONATE\SODIUM CHLORIDE
     Indication: Ill-defined disorder
     Dosage: 1 SACHET, TWO TIMES A DAY (ONE SACHET TWICE A DAY)
     Route: 065
     Dates: start: 20250317
  7. MIRTAZAPINE [Concomitant]
     Active Substance: MIRTAZAPINE
     Indication: Ill-defined disorder
     Route: 065
     Dates: start: 20250317
  8. SENNOSIDES [Concomitant]
     Active Substance: SENNOSIDES
     Indication: Ill-defined disorder
     Route: 065
     Dates: start: 20250317
  9. THIAMINE [Concomitant]
     Active Substance: THIAMINE
     Indication: Ill-defined disorder
     Dosage: 1 DOSAGE FORM, TWO TIMES A DAY (TAKE ONE TWICE A DAY)
     Route: 065
     Dates: start: 20250317
  10. RISPERIDONE [Concomitant]
     Active Substance: RISPERIDONE
     Indication: Ill-defined disorder
     Dosage: 1 DOSAGE FORM, TWO TIMES A DAY (TAKE ONE TABLET TWICE A DAY)
     Route: 065
     Dates: start: 20250320

REACTIONS (2)
  - Swelling face [Unknown]
  - Angioedema [Unknown]
